FAERS Safety Report 9128597 (Version 1)
Quarter: 2013Q1

REPORT INFORMATION
  Report Type: Report from Study
  Country: US (occurrence: US)
  Receive Date: 20130125
  Receipt Date: 20130125
  Transmission Date: 20140127
  Serious: Yes (Other)
  Sender: FDA-Public Use
  Company Number: US-ABBOTT-13P-163-1036303-00

PATIENT
  Sex: Male
  Weight: 133.93 kg

DRUGS (6)
  1. HUMIRA PEN [Suspect]
     Indication: RHEUMATOID ARTHRITIS
     Dates: start: 201205
  2. HUMIRA PEN [Suspect]
     Indication: PSORIASIS
  3. HUMIRA PEN [Suspect]
     Indication: COLITIS ULCERATIVE
  4. HUMIRA PEN [Suspect]
     Indication: SJOGREN^S SYNDROME
  5. CELLCEPT [Suspect]
     Indication: SJOGREN^S SYNDROME
  6. UNKNOWN EYE DROPS [Concomitant]
     Indication: DRY EYE

REACTIONS (7)
  - Deafness [Not Recovered/Not Resolved]
  - Cataract [Not Recovered/Not Resolved]
  - Psoriasis [Not Recovered/Not Resolved]
  - Gout [Not Recovered/Not Resolved]
  - Off label use [Not Recovered/Not Resolved]
  - Impaired healing [Not Recovered/Not Resolved]
  - Dry eye [Not Recovered/Not Resolved]
